FAERS Safety Report 9268056 (Version 1)
Quarter: 2013Q2

REPORT INFORMATION
  Report Type: Report from Study
  Country: US (occurrence: US)
  Receive Date: 20130502
  Receipt Date: 20130502
  Transmission Date: 20140414
  Serious: Yes (Other)
  Sender: FDA-Public Use
  Company Number: US-ALEXION-A201201310

PATIENT
  Age: 52 Year
  Sex: Male
  Weight: 127 kg

DRUGS (6)
  1. SOLIRIS [Suspect]
     Indication: PAROXYSMAL NOCTURNAL HAEMOGLOBINURIA
     Dosage: 600 MG, QW
     Route: 042
     Dates: start: 20100922, end: 20121027
  2. SOLIRIS [Suspect]
     Dosage: 900 MG, Q2W
     Route: 042
     Dates: start: 20121027
  3. LOVENOX [Concomitant]
     Indication: PROPHYLAXIS
     Dosage: 40 MG, QD
     Route: 058
     Dates: start: 20120703
  4. AMBIEN [Concomitant]
     Indication: SLEEP DISORDER
     Dosage: 5 MG, PRN QHS
     Route: 048
  5. IRON [Concomitant]
     Indication: SUPPLEMENTATION THERAPY
     Dosage: UNK QD
     Route: 048
  6. MULTIVITAMIN [Concomitant]
     Indication: SUPPLEMENTATION THERAPY
     Dosage: UNK QD
     Route: 048

REACTIONS (2)
  - Knee operation [Unknown]
  - Fatigue [Unknown]
